FAERS Safety Report 9834578 (Version 2)
Quarter: 2015Q2

REPORT INFORMATION
  Report Type: Spontaneous
  Country: DK (occurrence: DK)
  Receive Date: 20140122
  Receipt Date: 20150402
  Transmission Date: 20150821
  Serious: Yes (Other)
  Sender: FDA-Public Use
  Company Number: PHHY2014DK003663

PATIENT
  Age: 77 Year
  Sex: Female

DRUGS (1)
  1. HEXAMYCIN [Suspect]
     Active Substance: GENTAMICIN
     Indication: HYPERSENSITIVITY
     Dosage: 300 MG, QD,DAILY
     Route: 042
     Dates: start: 20130108, end: 20130108

REACTIONS (4)
  - Gait disturbance [Not Recovered/Not Resolved]
  - Pain [Recovered/Resolved]
  - Deafness [Not Recovered/Not Resolved]
  - Dizziness [Not Recovered/Not Resolved]

NARRATIVE: CASE EVENT DATE: 20130116
